FAERS Safety Report 6080784-X (Version None)
Quarter: 2009Q1

REPORT INFORMATION
  Report Type: 
  Country: None (occurrence: None)
  Receive Date: 20090217
  Receipt Date: 20090205
  Transmission Date: 20090719
  Serious: Yes (Other)
  Sender: FDA-Public Use
  Company Number: US-ELI_LILLY_AND_COMPANY-US200902001444

PATIENT
  Sex: Female
  Weight: 81.633 kg

DRUGS (8)
  1. ZYPREXA [Suspect]
     Dosage: 5 MG, UNK
     Dates: start: 20000601, end: 20061101
  2. SYMBYAX [Suspect]
     Dates: start: 20000601, end: 20061101
  3. ABILIFY [Concomitant]
     Dates: start: 20080201, end: 20080401
  4. SEROQUEL [Concomitant]
     Dates: start: 20070101, end: 20080101
  5. RISPERDAL [Concomitant]
     Dates: start: 20071101
  6. GEODON [Concomitant]
     Dates: start: 20070701, end: 20070801
  7. EFFEXOR [Concomitant]
     Dates: start: 20000601
  8. ATENOLOL [Concomitant]
     Dates: end: 20021201

REACTIONS (7)
  - ARTERIOSCLEROSIS [None]
  - ARTERIOSCLEROSIS CORONARY ARTERY [None]
  - CARDIAC ABLATION [None]
  - DIABETES MELLITUS [None]
  - HYPERGLYCAEMIA [None]
  - METABOLIC SYNDROME [None]
  - VASCULAR GRAFT [None]
